FAERS Safety Report 7994272-4 (Version None)
Quarter: 2011Q4

REPORT INFORMATION
  Report Type: 
  Country: None (occurrence: None)
  Receive Date: 20111220
  Receipt Date: 20111212
  Transmission Date: 20120403
  Serious: Yes (Other)
  Sender: FDA-Public Use
  Company Number: US-JNJFOC-20111205323

PATIENT
  Age: 93 Year
  Sex: Female
  Weight: 40.82 kg

DRUGS (2)
  1. TOPROL-XL [Concomitant]
  2. XARELTO [Suspect]
     Indication: ATRIAL FIBRILLATION
     Route: 065
     Dates: start: 20110101

REACTIONS (2)
  - ABNORMAL DREAMS [None]
  - AGITATION [None]
